FAERS Safety Report 24303772 (Version 1)
Quarter: 2024Q3

REPORT INFORMATION
  Report Type: Spontaneous
  Country: DE (occurrence: DE)
  Receive Date: 20240910
  Receipt Date: 20240910
  Transmission Date: 20241016
  Serious: Yes (Other)
  Sender: ROCHE
  Company Number: DE-ROCHE-10000076765

PATIENT
  Sex: Female

DRUGS (1)
  1. OCREVUS [Suspect]
     Active Substance: OCRELIZUMAB
     Indication: Relapsing multiple sclerosis
     Route: 065

REACTIONS (5)
  - Relapsing multiple sclerosis [Unknown]
  - Pharyngeal erythema [Recovering/Resolving]
  - Alopecia [Unknown]
  - Gastrointestinal inflammation [Unknown]
  - Influenza like illness [Recovered/Resolved]
